FAERS Safety Report 8789436 (Version 1)
Quarter: 2012Q4

REPORT INFORMATION
  Report Type: Spontaneous
  Country: US (occurrence: None)
  Receive Date: 20120910
  Receipt Date: 20120910
  Transmission Date: 20130627
  Serious: Yes (Life-Threatening, Hospitalization)
  Sender: FDA-Public Use
  Company Number: None

PATIENT
  Age: 6 Year
  Sex: Female
  Weight: 25.86 kg

DRUGS (1)
  1. QVAR [Suspect]
     Indication: ASTHMA PROPHYLAXIS
     Dosage: 40mcg 2 puffs twice a da Inhal
     Route: 055
     Dates: start: 20120501, end: 20120606

REACTIONS (3)
  - Platelet count decreased [None]
  - Petechiae [None]
  - Increased tendency to bruise [None]
